FAERS Safety Report 7207594-1 (Version None)
Quarter: 2010Q4

REPORT INFORMATION
  Report Type: 
  Country: None (occurrence: None)
  Receive Date: 20101221
  Receipt Date: 20101206
  Transmission Date: 20110411
  Serious: Yes (Hospitalization)
  Sender: FDA-Public Use
  Company Number: 2010SP063452

PATIENT
  Age: 20 Year
  Sex: Female
  Weight: 90.7194 kg

DRUGS (1)
  1. IMPLANON [Suspect]
     Indication: CONTRACEPTION
     Dosage: SBDE
     Route: 059
     Dates: start: 20100601, end: 20101119

REACTIONS (2)
  - DEPRESSION [None]
  - INSOMNIA [None]
